FAERS Safety Report 12173470 (Version 2)
Quarter: 2016Q2

REPORT INFORMATION
  Report Type: Spontaneous
  Country: US (occurrence: US)
  Receive Date: 20160311
  Receipt Date: 20160620
  Transmission Date: 20160815
  Serious: No
  Sender: FDA-Public Use
  Company Number: US-ALLERGAN-1638332US

PATIENT
  Age: 54 Year
  Sex: Male

DRUGS (1)
  1. PRED FORTE [Suspect]
     Active Substance: PREDNISOLONE ACETATE
     Indication: EYE INFLAMMATION
     Dosage: UNK, QD
     Route: 047
     Dates: start: 2014

REACTIONS (1)
  - Adverse event [Unknown]
